FAERS Safety Report 13907152 (Version 1)
Quarter: 2017Q3

REPORT INFORMATION
  Report Type: Report from Study
  Country: CA (occurrence: CA)
  Receive Date: 20170825
  Receipt Date: 20170825
  Transmission Date: 20171127
  Serious: Yes (Other)
  Sender: FDA-Public Use
  Company Number: CA-BAUSCH-BL-2017-025479

PATIENT
  Age: 41 Year
  Sex: Female

DRUGS (2)
  1. RIBAVIRIN. [Suspect]
     Active Substance: RIBAVIRIN
     Indication: HEPATITIS C VIRUS TEST POSITIVE
     Dosage: WEIGHT-BASED RIBAVIRIN IN A DIVIDED DOSE, 1000 MG WITH BODY WEIGHT OF LESS THAN 75 KG, 1200 MG WITH
     Route: 065
  2. LEDIPASVIR W/SOFOSBUVIR [Suspect]
     Active Substance: LEDIPASVIR\SOFOSBUVIR
     Indication: HEPATITIS C VIRUS TEST POSITIVE
     Dosage: FIXED-DOSE COMBINATION, 90 MG/400MG
     Route: 048

REACTIONS (1)
  - Intervertebral disc protrusion [Unknown]
